FAERS Safety Report 9272721 (Version 1)
Quarter: 2013Q2

REPORT INFORMATION
  Report Type: Spontaneous
  Country: US (occurrence: US)
  Receive Date: 20130506
  Receipt Date: 20130506
  Transmission Date: 20140414
  Serious: No
  Sender: FDA-Public Use
  Company Number: US-ASTRAZENECA-2012SE65073

PATIENT
  Age: 68 Year
  Sex: Male

DRUGS (4)
  1. PRILOSEC OTC [Suspect]
     Indication: BARRETT^S OESOPHAGUS
     Route: 048
     Dates: start: 2007, end: 20120809
  2. PRILOSEC OTC [Suspect]
     Indication: BARRETT^S OESOPHAGUS
     Route: 048
  3. PROTONIX [Suspect]
     Indication: BARRETT^S OESOPHAGUS
     Route: 048
  4. DIAZEPAM [Concomitant]
     Route: 048

REACTIONS (10)
  - Muscle tightness [Recovered/Resolved]
  - Tremor [Recovered/Resolved]
  - Nervousness [Recovered/Resolved]
  - Asthenia [Recovered/Resolved]
  - Dyspepsia [Recovered/Resolved]
  - Barrett^s oesophagus [Recovered/Resolved]
  - Condition aggravated [Recovered/Resolved]
  - Incorrect drug administration duration [Unknown]
  - Incorrect dose administered [Unknown]
  - Labelled drug-drug interaction medication error [Unknown]
